FAERS Safety Report 7190538-9 (Version None)
Quarter: 2010Q4

REPORT INFORMATION
  Report Type: 
  Country: None (occurrence: None)
  Receive Date: 20101223
  Receipt Date: 20101215
  Transmission Date: 20110411
  Serious: Yes (Death, Hospitalization)
  Sender: FDA-Public Use
  Company Number: JP-JNJFOC-20091103565

PATIENT
  Sex: Female
  Weight: 43 kg

DRUGS (39)
  1. DOXORUBICIN HCL [Suspect]
     Indication: OVARIAN CANCER RECURRENT
     Route: 042
     Dates: start: 20090619, end: 20091127
  2. DOXORUBICIN HCL [Suspect]
     Route: 042
     Dates: start: 20090619, end: 20091127
  3. DOXORUBICIN HCL [Suspect]
     Route: 042
     Dates: start: 20090619, end: 20091127
  4. DOXORUBICIN HCL [Suspect]
     Route: 042
     Dates: start: 20090619, end: 20091127
  5. DOXORUBICIN HCL [Suspect]
     Route: 042
     Dates: start: 20090619, end: 20091127
  6. DOXORUBICIN HCL [Suspect]
     Route: 042
     Dates: start: 20090619, end: 20091127
  7. NAVOBAN [Concomitant]
     Indication: PROPHYLAXIS
     Route: 048
  8. NAVOBAN [Concomitant]
     Route: 048
  9. NAVOBAN [Concomitant]
     Route: 048
  10. NAVOBAN [Concomitant]
     Route: 048
  11. NAVOBAN [Concomitant]
     Route: 048
  12. NAVOBAN [Concomitant]
     Route: 048
  13. PYDOXAL [Concomitant]
     Indication: PROPHYLAXIS
     Route: 048
  14. PYDOXAL [Concomitant]
     Route: 048
  15. PYDOXAL [Concomitant]
     Route: 048
  16. PYDOXAL [Concomitant]
     Route: 048
  17. PYDOXAL [Concomitant]
     Route: 048
  18. PYDOXAL [Concomitant]
     Route: 048
  19. DECADRON [Concomitant]
     Indication: PROPHYLAXIS
     Route: 042
  20. DECADRON [Concomitant]
     Route: 042
  21. DECADRON [Concomitant]
     Route: 042
  22. DECADRON [Concomitant]
     Route: 042
  23. DECADRON [Concomitant]
     Route: 042
  24. DECADRON [Concomitant]
     Route: 042
  25. RAMELTEON [Concomitant]
     Route: 048
  26. MUCOSTA [Concomitant]
     Route: 048
  27. GASTROM [Concomitant]
     Route: 048
  28. OMEPRAL [Concomitant]
     Route: 048
  29. CODEINE PHOSPHATE [Concomitant]
     Route: 048
  30. LOXONIN [Concomitant]
     Route: 048
  31. LENDORMIN [Concomitant]
     Route: 048
  32. ALLOID G [Concomitant]
     Route: 048
  33. PONTAL [Concomitant]
     Route: 048
  34. CELECOXIB [Concomitant]
     Route: 048
  35. MAGMITT [Concomitant]
     Route: 048
  36. OXYCONTIN [Concomitant]
     Route: 048
  37. OXINORM [Concomitant]
     Route: 048
  38. MYSLEE [Concomitant]
     Route: 048
  39. AZUNOL [Concomitant]
     Indication: PROPHYLAXIS
     Route: 049

REACTIONS (4)
  - ILEUS [None]
  - OROPHARYNGEAL PAIN [None]
  - OVARIAN CANCER [None]
  - RADIATION OESOPHAGITIS [None]
